FAERS Safety Report 7654446-9 (Version None)
Quarter: 2011Q3

REPORT INFORMATION
  Report Type: 
  Country: None (occurrence: None)
  Receive Date: 20110803
  Receipt Date: 20110801
  Transmission Date: 20111222
  Serious: Yes (Other)
  Sender: FDA-Public Use
  Company Number: BR-PFIZER INC-2011175689

PATIENT
  Age: 48 Year
  Sex: Female
  Weight: 74 kg

DRUGS (1)
  1. XALATAN [Suspect]
     Indication: GLAUCOMA
     Dosage: 3 UG (ONE DROP IN EACH EYE), 1X/DAY
     Route: 047
     Dates: start: 20060101, end: 20110701

REACTIONS (3)
  - ERYTHEMA [None]
  - HYPERSENSITIVITY [None]
  - SWELLING [None]
